FAERS Safety Report 14128049 (Version 1)
Quarter: 2017Q4

REPORT INFORMATION
  Report Type: Spontaneous
  Country: US (occurrence: US)
  Receive Date: 20171026
  Receipt Date: 20171026
  Transmission Date: 20180321
  Serious: No
  Sender: FDA-Public Use
  Company Number: US-TEVA-733561ACC

PATIENT
  Sex: Female
  Weight: 72 kg

DRUGS (2)
  1. HYDROXYCARBAMIDE [Suspect]
     Active Substance: HYDROXYUREA
  2. HYDROXYCARBAMIDE [Suspect]
     Active Substance: HYDROXYUREA
     Indication: CEREBROVASCULAR ACCIDENT
     Route: 048

REACTIONS (3)
  - Nail discolouration [Not Recovered/Not Resolved]
  - Stomatitis [Recovered/Resolved]
  - Abdominal pain upper [Recovered/Resolved]
